FAERS Safety Report 9687162 (Version 3)
Quarter: 2016Q3

REPORT INFORMATION
  Report Type: Report from Study
  Country: US (occurrence: US)
  Receive Date: 20131113
  Receipt Date: 20160902
  Transmission Date: 20161109
  Serious: Yes (Hospitalization)
  Sender: FDA-Public Use
  Company Number: US-ROCHE-1303273

PATIENT
  Sex: Female

DRUGS (3)
  1. XOLAIR [Suspect]
     Active Substance: OMALIZUMAB
     Indication: ASTHMA
     Route: 058
  2. LEVAQUIN [Concomitant]
     Active Substance: LEVOFLOXACIN
     Dosage: X 14 DAYS
     Route: 065
  3. KENALOG [Concomitant]
     Active Substance: TRIAMCINOLONE ACETONIDE
     Route: 030

REACTIONS (9)
  - Asthma [Unknown]
  - Nasal discharge discolouration [Unknown]
  - Rhonchi [Unknown]
  - Wheezing [Unknown]
  - Bronchitis [Unknown]
  - Rhinitis allergic [Unknown]
  - Nasal mucosal disorder [Unknown]
  - Productive cough [Unknown]
  - Conjunctivitis allergic [Unknown]
